FAERS Safety Report 12671328 (Version 1)
Quarter: 2016Q3

REPORT INFORMATION
  Report Type: Spontaneous
  Country: US (occurrence: US)
  Receive Date: 20160822
  Receipt Date: 20160822
  Transmission Date: 20161109
  Serious: No
  Sender: FDA-Public Use
  Company Number: US-TEVA-660818USA

PATIENT
  Age: 61 Year
  Sex: Female
  Weight: 82.54 kg

DRUGS (2)
  1. FEXOFENADINE [Suspect]
     Active Substance: FEXOFENADINE\FEXOFENADINE HYDROCHLORIDE
     Indication: PRURITUS
     Dosage: 180 MILLIGRAM DAILY;
     Route: 048
     Dates: start: 201602
  2. VITAMINS NOS [Concomitant]
     Active Substance: VITAMINS

REACTIONS (2)
  - Product use issue [Unknown]
  - Chromaturia [Not Recovered/Not Resolved]

NARRATIVE: CASE EVENT DATE: 201602
